FAERS Safety Report 11324569 (Version 3)
Quarter: 2015Q3

REPORT INFORMATION
  Report Type: Report from Study
  Country: BE (occurrence: BE)
  Receive Date: 20150730
  Receipt Date: 20150831
  Transmission Date: 20151125
  Serious: Yes (Death, Other)
  Sender: FDA-Public Use
  Company Number: BE-ABBVIE-14P-013-1313417-00

PATIENT
  Sex: Female

DRUGS (9)
  1. DUODOPA [Suspect]
     Active Substance: CARBIDOPA\LEVODOPA
     Dosage: AM 1ML, CD 5.2ML/H IN 16HRS, ND 2.9ML/H IN 8HRS, ED 2.8ML
     Route: 050
     Dates: start: 20141118, end: 20150701
  2. DUODOPA [Suspect]
     Active Substance: CARBIDOPA\LEVODOPA
     Dosage: AM=1ML; CD=5.8ML/HR DURING 16HRS; ED=3.8ML; ND=3.9ML/HR DURING 8HRS
     Route: 050
     Dates: start: 20150708, end: 20150710
  3. DUODOPA [Suspect]
     Active Substance: CARBIDOPA\LEVODOPA
     Dosage: DOSAGE CONTINUOUSLY MONITORED AND ADJUSTED
     Route: 050
     Dates: start: 20090908, end: 20140213
  4. DUODOPA [Suspect]
     Active Substance: CARBIDOPA\LEVODOPA
     Dosage: AM 0.5ML, CD 5.2ML/H IN 16HRS, ND 2.9ML/H IN 8HRS, ED 2.7ML
     Route: 050
     Dates: start: 20140213, end: 20141118
  5. DUODOPA [Suspect]
     Active Substance: CARBIDOPA\LEVODOPA
     Dosage: AM DOSE= 2ML, CONTIN DOSE= 3ML/H DURING 16HRS, EXTRA DOSE=1.6ML
     Route: 050
     Dates: start: 20090430, end: 20090908
  6. DUODOPA [Suspect]
     Active Substance: CARBIDOPA\LEVODOPA
     Dosage: AM = 1 ML, CD = 5.7 ML/H DURING 16H, ED = 3.4 ML, ND = 3.9 ML/H DURING 8H
     Route: 050
     Dates: start: 20150710
  7. DUODOPA [Suspect]
     Active Substance: CARBIDOPA\LEVODOPA
     Indication: PARKINSON^S DISEASE
     Dosage: UNKNOWN
     Route: 050
     Dates: start: 20090428, end: 20090430
  8. DUODOPA [Suspect]
     Active Substance: CARBIDOPA\LEVODOPA
     Dosage: AM=1ML; CD=5.5ML/HR DURING 16HRS; ED=2.8ML; ND=3.6ML/HR DURING 8HR
     Route: 050
     Dates: start: 20150701, end: 20150703
  9. DUODOPA [Suspect]
     Active Substance: CARBIDOPA\LEVODOPA
     Dosage: AM=1ML; CD=5.8ML/HR DURING 16HRS; ED=2.8ML; ND=3.9ML/HR DURING 8 HRS
     Route: 050
     Dates: start: 20150703, end: 20150708

REACTIONS (10)
  - Confusional state [Unknown]
  - Bedridden [Unknown]
  - Drug ineffective [Not Recovered/Not Resolved]
  - On and off phenomenon [Unknown]
  - Drug ineffective [Unknown]
  - Cachexia [Fatal]
  - Agitation [Unknown]
  - Somnolence [Unknown]
  - Hypophagia [Unknown]
  - General physical health deterioration [Fatal]
